FAERS Safety Report 11717574 (Version 2)
Quarter: 2016Q1

REPORT INFORMATION
  Report Type: Spontaneous
  Country: TR (occurrence: TR)
  Receive Date: 20151110
  Receipt Date: 20160208
  Transmission Date: 20160525
  Serious: Yes (Hospitalization, Other)
  Sender: FDA-Public Use
  Company Number: TR-SUN PHARMACEUTICAL INDUSTRIES LTD-2015RR-104426

PATIENT

DRUGS (5)
  1. LAMOTRIGINE. [Concomitant]
     Active Substance: LAMOTRIGINE
     Indication: EPILEPSY
     Dosage: 300 MG, DAILY
     Route: 065
  2. GABAPENTIN. [Suspect]
     Active Substance: GABAPENTIN
     Indication: EPILEPSY
     Dosage: 2400 MG, DAILY
     Route: 065
  3. GABAPENTIN. [Suspect]
     Active Substance: GABAPENTIN
     Indication: EPILEPSY
     Dosage: UNK
     Route: 065
  4. CARBAMAZEPINE. [Concomitant]
     Active Substance: CARBAMAZEPINE
     Indication: EPILEPSY
     Dosage: 600 MG, DAILY
     Route: 065
  5. CARBAMAZEPINE. [Concomitant]
     Active Substance: CARBAMAZEPINE
     Indication: EPILEPSY
     Dosage: 400 MG, DAILY
     Route: 065

REACTIONS (3)
  - Thrombocytopenia [Recovering/Resolving]
  - Pancytopenia [Recovering/Resolving]
  - Gingival bleeding [Recovering/Resolving]
